FAERS Safety Report 7430956-4 (Version None)
Quarter: 2011Q2

REPORT INFORMATION
  Report Type: 
  Country: None (occurrence: None)
  Receive Date: 20110421
  Receipt Date: 20110412
  Transmission Date: 20111010
  Serious: Yes (Hospitalization)
  Sender: FDA-Public Use
  Company Number: PHHY2011US30625

PATIENT
  Age: 90 Year
  Sex: Male

DRUGS (6)
  1. VINBLASTINE [Suspect]
     Indication: HODGKIN'S DISEASE
     Dosage: UNK
  2. PREDNISONE [Suspect]
     Indication: HODGKIN'S DISEASE
     Dosage: UNK
  3. PROCARBAZINE [Suspect]
     Indication: HODGKIN'S DISEASE
  4. CYCLOPHOSPHAMIDE [Suspect]
     Indication: HODGKIN'S DISEASE
  5. DACARBAZINE [Suspect]
     Indication: HODGKIN'S DISEASE
  6. ADRIAMYCIN PFS [Suspect]
     Indication: HODGKIN'S DISEASE

REACTIONS (6)
  - HYPOCALCAEMIA [None]
  - NEOPLASM MALIGNANT [None]
  - FATIGUE [None]
  - DECREASED APPETITE [None]
  - MUSCULAR WEAKNESS [None]
  - BLOOD MAGNESIUM DECREASED [None]
